FAERS Safety Report 7387563-1 (Version None)
Quarter: 2011Q1

REPORT INFORMATION
  Report Type: 
  Country: None (occurrence: None)
  Receive Date: 20110331
  Receipt Date: 20110329
  Transmission Date: 20110831
  Serious: No
  Sender: FDA-Public Use
  Company Number: IE-AMGEN-IRLSP2011012834

PATIENT
  Age: 74 Year
  Sex: Male

DRUGS (2)
  1. ASPIRIN [Concomitant]
  2. ARANESP [Suspect]
     Indication: RENAL FAILURE CHRONIC

REACTIONS (6)
  - CHEST DISCOMFORT [None]
  - ASTHENIA [None]
  - PAIN IN EXTREMITY [None]
  - DYSPNOEA [None]
  - HAEMOGLOBIN DECREASED [None]
  - VOMITING [None]
